FAERS Safety Report 4674528-3 (Version None)
Quarter: 2005Q2

REPORT INFORMATION
  Report Type: 
  Country: None (occurrence: None)
  Receive Date: 20050524
  Receipt Date: 20050516
  Transmission Date: 20051028
  Serious: Yes (Death, Life-Threatening)
  Sender: FDA-Public Use
  Company Number: 20050500125

PATIENT

DRUGS (2)
  1. REGLAN [Suspect]
     Dates: start: 20040901
  2. ZOFRAN [Suspect]
     Dates: start: 20040901

REACTIONS (4)
  - DEATH NEONATAL [None]
  - DRUG EXPOSURE DURING PREGNANCY [None]
  - FOETAL HEART RATE ABNORMAL [None]
  - STILLBIRTH [None]
